FAERS Safety Report 12609559 (Version 1)
Quarter: 2016Q3

REPORT INFORMATION
  Report Type: Spontaneous
  Country: US (occurrence: US)
  Receive Date: 20160801
  Receipt Date: 20160801
  Transmission Date: 20161109
  Serious: No
  Sender: FDA-Public Use
  Company Number: US-TEVA-644751USA

PATIENT
  Sex: Female
  Weight: 59.02 kg

DRUGS (5)
  1. NIFEDIPINE. [Concomitant]
     Active Substance: NIFEDIPINE
     Dosage: 60 MILLIGRAM DAILY;
     Dates: start: 2006
  2. AMPYRA [Suspect]
     Active Substance: DALFAMPRIDINE
     Indication: GAIT DISTURBANCE
     Dosage: 20 MILLIGRAM DAILY;
     Route: 048
     Dates: start: 201003
  3. BACLOFEN. [Suspect]
     Active Substance: BACLOFEN
     Indication: PRODUCT USED FOR UNKNOWN INDICATION
     Dosage: 10 MILLIGRAM DAILY;
     Route: 048
     Dates: start: 2014
  4. SYNTHROID [Concomitant]
     Active Substance: LEVOTHYROXINE SODIUM
     Dosage: 75 MICROGRAM DAILY;
     Dates: start: 1990
  5. GABAPENTIN. [Concomitant]
     Active Substance: GABAPENTIN
     Dosage: 400 MILLIGRAM DAILY;
     Dates: start: 2011

REACTIONS (3)
  - Dizziness [Recovered/Resolved]
  - Gait disturbance [Not Recovered/Not Resolved]
  - Drug intolerance [Unknown]

NARRATIVE: CASE EVENT DATE: 2014
